FAERS Safety Report 17851437 (Version 1)
Quarter: 2020Q3

REPORT INFORMATION
  Report Type: Spontaneous
  Country: AU (occurrence: AU)
  Receive Date: 20200602
  Receipt Date: 20200602
  Transmission Date: 20201104
  Serious: Yes (Hospitalization)
  Sender: FDA-Public Use
  Company Number: AU-AMGEN-AUSSP2020084895

PATIENT
  Age: 83 Year
  Sex: Female
  Weight: 69 kg

DRUGS (11)
  1. KARVEZIDE [Concomitant]
     Active Substance: HYDROCHLOROTHIAZIDE\IRBESARTAN
     Dosage: UNK
     Dates: start: 20120702
  2. MAGNESIUM [Concomitant]
     Active Substance: MAGNESIUM
     Dosage: UNK
     Dates: start: 20200403
  3. LIPITOR [Concomitant]
     Active Substance: ATORVASTATIN CALCIUM
     Dosage: UNK
     Dates: start: 2013
  4. ABRAXANE [Suspect]
     Active Substance: PACLITAXEL
     Indication: INVASIVE DUCTAL BREAST CARCINOMA
     Dosage: 178 MILLIGRAM, 2 WEEKS ON, 1 WEEK OFF
     Route: 042
     Dates: start: 20200327, end: 20200403
  5. OSTELIN [ERGOCALCIFEROL] [Concomitant]
     Dosage: UNK
     Dates: start: 2018
  6. VENTOLINE [SALBUTAMOL] [Concomitant]
     Active Substance: ALBUTEROL SULFATE
  7. XGEVA [Suspect]
     Active Substance: DENOSUMAB
     Indication: INVASIVE DUCTAL BREAST CARCINOMA
     Dosage: 120 MILLIGRAM, QMO
     Route: 058
     Dates: start: 20200403
  8. VERAPAMIL [Concomitant]
     Active Substance: VERAPAMIL HYDROCHLORIDE
     Dosage: UNK
     Dates: start: 20120702
  9. DICLOFENAC [Concomitant]
     Active Substance: DICLOFENAC
     Dosage: UNK
     Dates: start: 20200317
  10. ELACESTRANT. [Suspect]
     Active Substance: ELACESTRANT
     Indication: BREAST CANCER
     Dosage: 400 MILLIGRAM, QD
     Route: 048
     Dates: start: 20200128, end: 20200323
  11. PANADOL [Concomitant]
     Active Substance: ACETAMINOPHEN
     Dosage: UNK
     Dates: start: 2013

REACTIONS (1)
  - Electrolyte imbalance [Recovered/Resolved]

NARRATIVE: CASE EVENT DATE: 20200408
